FAERS Safety Report 10065255 (Version 4)
Quarter: 2014Q4

REPORT INFORMATION
  Report Type: Spontaneous
  Country: US (occurrence: None)
  Receive Date: 20140404
  Receipt Date: 20141112
  Transmission Date: 20150528
  Serious: Yes (Other)
  Sender: FDA-Public Use
  Company Number: 2014SGN00256

PATIENT
  Age: 58 Year
  Sex: Male
  Weight: 87.1 kg

DRUGS (10)
  1. RITUXIMAB [Suspect]
     Active Substance: RITUXIMAB
     Indication: DIFFUSE LARGE B-CELL LYMPHOMA
     Dosage: Q21D
     Route: 042
     Dates: start: 20131101, end: 20140212
  2. OMEPRAZOLE (OMEPRAZOLE) [Concomitant]
     Active Substance: OMEPRAZOLE
  3. LORAZEPAM (LORAZEPAM) [Concomitant]
     Active Substance: LORAZEPAM
  4. PROCHLORPERAZINE (PROCHLORPERAZINE) [Concomitant]
     Active Substance: PROCHLORPERAZINE
  5. LACTULOSE (LACTULOSE) [Concomitant]
     Active Substance: LACTULOSE
  6. PREDNISONE. [Suspect]
     Active Substance: PREDNISONE
     Indication: DIFFUSE LARGE B-CELL LYMPHOMA
     Dosage: QCYCLE
     Route: 048
     Dates: start: 20131101, end: 20140216
  7. DOXORUBICIN [Suspect]
     Active Substance: DOXORUBICIN
     Indication: DIFFUSE LARGE B-CELL LYMPHOMA
     Dosage: Q21D
     Route: 042
     Dates: start: 20131101, end: 20140212
  8. BRENTUXIMAB VEDOTIN [Suspect]
     Active Substance: BRENTUXIMAB VEDOTIN
     Indication: DIFFUSE LARGE B-CELL LYMPHOMA
     Dosage: Q21 DAYS
     Route: 042
     Dates: start: 20131101, end: 20140212
  9. CYCLOPHOSPHAMIDE. [Suspect]
     Active Substance: CYCLOPHOSPHAMIDE
     Indication: DIFFUSE LARGE B-CELL LYMPHOMA
     Dosage: Q21D
     Route: 042
     Dates: start: 20131101, end: 20140212
  10. VINCRISTINE [Suspect]
     Active Substance: VINCRISTINE
     Indication: DIFFUSE LARGE B-CELL LYMPHOMA
     Dosage: Q21D
     Route: 042
     Dates: start: 20131101, end: 20140212

REACTIONS (6)
  - Cataract [None]
  - Optic nerve disorder [None]
  - Vitreous degeneration [None]
  - Optic nerve injury [None]
  - Visual acuity reduced [None]
  - Refraction disorder [None]

NARRATIVE: CASE EVENT DATE: 20140305
